FAERS Safety Report 14342901 (Version 1)
Quarter: 2017Q4

REPORT INFORMATION
  Report Type: Spontaneous
  Country: US (occurrence: US)
  Receive Date: 20171230
  Receipt Date: 20171230
  Transmission Date: 20180321
  Serious: Yes (Other)
  Sender: FDA-Public Use
  Company Number: None

PATIENT
  Age: 47 Year
  Sex: Female
  Weight: 67.5 kg

DRUGS (10)
  1. PROZAC [Concomitant]
     Active Substance: FLUOXETINE HYDROCHLORIDE
  2. VITAMIN B12 [Concomitant]
     Active Substance: CYANOCOBALAMIN
  3. VITAMIN D3 [Concomitant]
     Active Substance: CHOLECALCIFEROL
  4. LEVOTHYROXINE. [Concomitant]
     Active Substance: LEVOTHYROXINE
  5. TYLENOL [Concomitant]
     Active Substance: ACETAMINOPHEN
  6. WELLBUTRIN [Concomitant]
     Active Substance: BUPROPION HYDROCHLORIDE
  7. CHLORAPREP [Suspect]
     Active Substance: CHLORHEXIDINE GLUCONATE\ISOPROPYL ALCOHOL
     Indication: THERAPEUTIC SKIN CARE TOPICAL
     Dosage: QUANTITY:1 CONTAINER;OTHER FREQUENCY:ONCE;?
     Route: 061
     Dates: start: 20171227
  8. MAGNESIUM [Concomitant]
     Active Substance: MAGNESIUM
  9. CALAMINE LOTION [Concomitant]
     Active Substance: CALAMINE LOTION
  10. AVENO HYDROCORTISONE CREAM [Concomitant]

REACTIONS (5)
  - Application site vesicles [None]
  - Application site rash [None]
  - Application site pain [None]
  - Application site urticaria [None]
  - Application site pruritus [None]

NARRATIVE: CASE EVENT DATE: 20171227
